FAERS Safety Report 17886479 (Version 3)
Quarter: 2020Q3

REPORT INFORMATION
  Report Type: Spontaneous
  Country: FR (occurrence: FR)
  Receive Date: 20200611
  Receipt Date: 20200713
  Transmission Date: 20201103
  Serious: Yes (Other)
  Sender: FDA-Public Use
  Company Number: NVSC2020FR159721

PATIENT
  Age: 56 Year
  Sex: Male

DRUGS (10)
  1. PREDNISONE. [Concomitant]
     Active Substance: PREDNISONE
     Indication: PRODUCT USED FOR UNKNOWN INDICATION
     Dosage: 30 MG, QD (EVERY OTHER DAY)
     Route: 065
  2. ATORVASTATIN [Suspect]
     Active Substance: ATORVASTATIN
     Indication: HYPERCHOLESTEROLAEMIA
     Dosage: 40 MG, QD, 1.5 YEARS
     Route: 065
  3. BISOPROLOL [Concomitant]
     Active Substance: BISOPROLOL
     Indication: HYPERCHOLESTEROLAEMIA
     Dosage: 3.75 MG, BID
     Route: 065
  4. AMBENONIUM CHLORIDE [Suspect]
     Active Substance: AMBENONIUM CHLORIDE
     Indication: OCULAR MYASTHENIA
     Dosage: 30 MG, QD
     Route: 065
  5. BISOPROLOL [Concomitant]
     Active Substance: BISOPROLOL
     Indication: CORONARY ARTERY DISEASE
  6. ASPIRIN. [Concomitant]
     Active Substance: ASPIRIN
     Indication: CORONARY ARTERY DISEASE
  7. ATORVASTATIN [Suspect]
     Active Substance: ATORVASTATIN
     Indication: CORONARY ARTERY DISEASE
  8. ASPIRIN. [Concomitant]
     Active Substance: ASPIRIN
     Indication: HYPERCHOLESTEROLAEMIA
     Dosage: 100 MG, QD
     Route: 065
  9. ESOMEPRAZOLE. [Concomitant]
     Active Substance: ESOMEPRAZOLE MAGNESIUM
     Indication: HYPERCHOLESTEROLAEMIA
     Dosage: 20 MG, QD
     Route: 065
  10. ESOMEPRAZOLE. [Concomitant]
     Active Substance: ESOMEPRAZOLE MAGNESIUM
     Indication: CORONARY ARTERY DISEASE

REACTIONS (6)
  - Myasthenia gravis [Unknown]
  - Ocular myasthenia [Recovered/Resolved]
  - Diplopia [Recovered/Resolved]
  - Drug ineffective [Unknown]
  - Eyelid ptosis [Recovered/Resolved]
  - Ophthalmoplegia [Unknown]
